FAERS Safety Report 11772440 (Version 5)
Quarter: 2019Q3

REPORT INFORMATION
  Report Type: Spontaneous
  Country: US (occurrence: US)
  Receive Date: 20151124
  Receipt Date: 20190830
  Transmission Date: 20191004
  Serious: Yes (Hospitalization, Other)
  Sender: FDA-Public Use
  Company Number: US-PFIZER INC-2015391219

PATIENT
  Age: 57 Year
  Sex: Male
  Weight: 136 kg

DRUGS (7)
  1. LYRICA [Suspect]
     Active Substance: PREGABALIN
     Indication: NEURALGIA
     Dosage: 225 MG, DAILY (ONE IN MORNING, TWO AT NIGHT)
     Route: 048
  2. VALSARTAN. [Concomitant]
     Active Substance: VALSARTAN
  3. INSULIN [Concomitant]
     Active Substance: INSULIN NOS
  4. COREG [Concomitant]
     Active Substance: CARVEDILOL
  5. LYRICA [Suspect]
     Active Substance: PREGABALIN
     Indication: DIABETIC NEUROPATHY
     Dosage: 75 MG, DAILY [TAKE 1 CAPSULE (75 MG TOTAL) BY MOUTH DAILY]
     Route: 048
  6. COUMADIN [Concomitant]
     Active Substance: WARFARIN SODIUM
  7. PROGRAF [Concomitant]
     Active Substance: TACROLIMUS\TACROLIMUS ANHYDROUS

REACTIONS (13)
  - Malaise [Unknown]
  - Red blood cell count decreased [Unknown]
  - Weight increased [Unknown]
  - Dermal cyst [Unknown]
  - Arthralgia [Unknown]
  - Malignant melanoma [Unknown]
  - Loss of personal independence in daily activities [Unknown]
  - Body height decreased [Unknown]
  - Immobile [Unknown]
  - Peripheral swelling [Unknown]
  - Heart transplant rejection [Unknown]
  - Pain in extremity [Unknown]
  - Joint swelling [Unknown]
